FAERS Safety Report 16315001 (Version 1)
Quarter: 2019Q2

REPORT INFORMATION
  Report Type: Spontaneous
  Country: CN (occurrence: CN)
  Receive Date: 20190515
  Receipt Date: 20190515
  Transmission Date: 20190711
  Serious: Yes (Hospitalization)
  Sender: FDA-Public Use
  Company Number: CN-BAXTER-2019BAX009386

PATIENT
  Age: 48 Year
  Sex: Female
  Weight: 50 kg

DRUGS (8)
  1. VINCRISTINE SULFATE. [Suspect]
     Active Substance: VINCRISTINE SULFATE
     Indication: BRAIN CANCER METASTATIC
     Dosage: DILUTED WITH SODIUM CHLORIDE.
     Route: 042
     Dates: start: 20190403, end: 20190403
  2. ENDOXAN [Suspect]
     Active Substance: CYCLOPHOSPHAMIDE
     Indication: BRAIN CANCER METASTATIC
     Dosage: DILUTED WITH 0.9 % SODIUM CHLORIDE 500 ML, DOSAGE FORM: INJECTION
     Route: 041
     Dates: start: 20190403, end: 20190403
  3. VINCRISTINE SULFATE. [Suspect]
     Active Substance: VINCRISTINE SULFATE
     Dosage: DOSE RE-INTRODUCED, DILUTED WITH SODIUM CHLORIDE
     Route: 042
  4. ENDOXAN [Suspect]
     Active Substance: CYCLOPHOSPHAMIDE
     Dosage: DOSE RE-INTRODUCED, DILUTED WITH SODIUM CHLORIDE, DOSAGE FORM: INJECTION
     Route: 041
  5. 0.9% SODIUM CHLORIDE INJECTION [Suspect]
     Active Substance: SODIUM CHLORIDE
     Dosage: VINCRISTINE SULFATE 2 MG+ SODIUM CHLORIDE 20 ML. DOSAGE FORM: INJECTION.
     Route: 042
     Dates: start: 20190403, end: 20190403
  6. 0.9% SODIUM CHLORIDE INJECTION [Suspect]
     Active Substance: SODIUM CHLORIDE
     Dosage: DOSE RE-INTRODUCED, CYCLOPHOSPHAMIDE + SODIUM CHLORIDE. DOSAGE FORM: INJECTION.
     Route: 041
  7. 0.9% SODIUM CHLORIDE INJECTION [Suspect]
     Active Substance: SODIUM CHLORIDE
     Indication: MEDICATION DILUTION
     Dosage: DILUTED WITH CYCLOPHOSPHAMIDE 0.9 G+ SODIUM CHLORIDE 500 ML. DOSAGE FORM: INJECTION.
     Route: 041
     Dates: start: 20190403, end: 20190403
  8. 0.9% SODIUM CHLORIDE INJECTION [Suspect]
     Active Substance: SODIUM CHLORIDE
     Dosage: DOSE RE-INTRODUCED, VINCRISTINE SULFATE + SODIUM CHLORIDE. DOSAGE FORM: INJECTION.
     Route: 042

REACTIONS (1)
  - Leukopenia [Recovered/Resolved]

NARRATIVE: CASE EVENT DATE: 20190407
